FAERS Safety Report 8962265 (Version 1)
Quarter: 2012Q4

REPORT INFORMATION
  Report Type: Report from Study
  Country: CA (occurrence: CA)
  Receive Date: 20121211
  Receipt Date: 20121211
  Transmission Date: 20130627
  Serious: Yes (Other)
  Sender: FDA-Public Use
  Company Number: CA-ASTELLAS-2012US011983

PATIENT

DRUGS (2)
  1. ERLOTINIB TABLET [Suspect]
     Indication: NON-SMALL CELL LUNG CANCER
     Dosage: Dose Delayed (day 1, cycle 1)
     Route: 048
  2. FORETINIB [Suspect]
     Indication: NON-SMALL CELL LUNG CANCER
     Dosage: Dose delayed (day 14, cycle 1)
     Route: 048

REACTIONS (2)
  - Pain [Unknown]
  - Mucosal inflammation [Unknown]
